FAERS Safety Report 21214564 (Version 1)
Quarter: 2022Q3

REPORT INFORMATION
  Report Type: Report from Study
  Country: EG (occurrence: EG)
  Receive Date: 20220816
  Receipt Date: 20220816
  Transmission Date: 20221026
  Serious: Yes (Hospitalization)
  Sender: FDA-Public Use
  Company Number: EG-AMGEN-EGYSL2022139323

PATIENT
  Sex: Male

DRUGS (1)
  1. VECTIBIX [Suspect]
     Active Substance: PANITUMUMAB
     Indication: Colorectal cancer
     Dosage: UNK, UNK
     Route: 065
     Dates: start: 20211118, end: 20220401

REACTIONS (4)
  - Haemoglobin decreased [Unknown]
  - Rash pruritic [Recovered/Resolved]
  - Gait inability [Unknown]
  - Ulcer [Unknown]
